FAERS Safety Report 12527048 (Version 1)
Quarter: 2016Q3

REPORT INFORMATION
  Report Type: Spontaneous
  Country: FR (occurrence: FR)
  Receive Date: 20160705
  Receipt Date: 20160705
  Transmission Date: 20161109
  Serious: Yes (Death, Hospitalization, Other)
  Sender: FDA-Public Use
  Company Number: FR-GLAXOSMITHKLINE-FR2016GSK093664

PATIENT
  Age: 78 Year
  Sex: Female

DRUGS (5)
  1. PIASCLEDINE [Suspect]
     Active Substance: AVOCADO OIL\SOYBEAN OIL
     Indication: GAIT DISTURBANCE
     Dosage: 300 MG, UNK
     Route: 048
     Dates: end: 20160602
  2. VOLTARENE [Suspect]
     Active Substance: DICLOFENAC SODIUM
     Indication: GAIT DISTURBANCE
     Dosage: UNK
     Route: 048
     Dates: start: 20160531, end: 201606
  3. PROPRANOLOL [Suspect]
     Active Substance: PROPRANOLOL\PROPRANOLOL HYDROCHLORIDE
     Indication: GASTROOESOPHAGEAL VARICEAL HAEMORRHAGE PROPHYLAXIS
     Dosage: UNK
     Route: 048
     Dates: end: 20160602
  4. PARACETAMOL [Suspect]
     Active Substance: ACETAMINOPHEN
     Indication: GAIT DISTURBANCE
     Dosage: UNK
     Route: 048
     Dates: end: 20160602
  5. SPIRONOLACTONE. [Suspect]
     Active Substance: SPIRONOLACTONE
     Indication: ASCITES
     Dosage: UNK
     Route: 048
     Dates: end: 20160602

REACTIONS (2)
  - Urosepsis [Recovering/Resolving]
  - Staphylococcal sepsis [Fatal]

NARRATIVE: CASE EVENT DATE: 20160602
